FAERS Safety Report 5444053-0 (Version None)
Quarter: 2007Q3

REPORT INFORMATION
  Report Type: 
  Country: None (occurrence: None)
  Receive Date: 20070831
  Receipt Date: 20070817
  Transmission Date: 20080115
  Serious: Yes (Other)
  Sender: FDA-Public Use
  Company Number: 2007SP016949

PATIENT
  Sex: Male

DRUGS (6)
  1. MIRALAX [Suspect]
     Indication: DRUG USE FOR UNKNOWN INDICATION
     Dosage: ; PO
     Route: 048
  2. COUMADIN [Suspect]
     Indication: DRUG USE FOR UNKNOWN INDICATION
  3. LASIX [Concomitant]
  4. CHOLESTEROL MEDICATION [Concomitant]
  5. AMARYL [Concomitant]
  6. DIETARY FIBER [Concomitant]

REACTIONS (2)
  - FAECES DISCOLOURED [None]
  - HAEMORRHOIDAL HAEMORRHAGE [None]
